FAERS Safety Report 8798213 (Version 7)
Quarter: 2014Q4

REPORT INFORMATION
  Report Type: Spontaneous
  Country: US (occurrence: US)
  Receive Date: 20120920
  Receipt Date: 20141016
  Transmission Date: 20150529
  Serious: Yes (Hospitalization, Other)
  Sender: FDA-Public Use
  Company Number: US-ASTRAZENECA-2012SE71100

PATIENT
  Age: 58 Year
  Sex: Male
  Weight: 87.5 kg

DRUGS (26)
  1. ZOLADEX [Suspect]
     Active Substance: GOSERELIN ACETATE
     Indication: PROSTATE CANCER
     Route: 058
     Dates: start: 201307
  2. NEXIUM [Suspect]
     Active Substance: ESOMEPRAZOLE MAGNESIUM
     Indication: GASTROOESOPHAGEAL REFLUX DISEASE
     Dosage: PRN
     Route: 048
  3. LANTUS INSULIN [Concomitant]
     Indication: DIABETES MELLITUS
     Dosage: 290 PERCENT
  4. MORPHINE [Concomitant]
     Active Substance: MORPHINE
     Indication: PAIN
  5. NEXIUM [Suspect]
     Active Substance: ESOMEPRAZOLE MAGNESIUM
     Indication: GASTROOESOPHAGEAL REFLUX DISEASE
     Dosage: TWICE DAILY
     Route: 048
  6. RECLAST [Concomitant]
     Active Substance: ZOLEDRONIC ACID
     Dosage: RECEIVED 2 DOSES ON JUL-2013 AND AUG-2013
  7. CYMBALTA [Concomitant]
     Active Substance: DULOXETINE HYDROCHLORIDE
     Indication: PAIN
  8. CASODEX [Suspect]
     Active Substance: BICALUTAMIDE
     Route: 048
  9. CALLER REFUSED TO PROVIDE [Concomitant]
  10. LANTUS INSULIN [Concomitant]
     Indication: DIABETES MELLITUS
     Dosage: 50 U BID
  11. LYRICA [Concomitant]
     Active Substance: PREGABALIN
     Indication: PAIN
  12. LIPITOR [Concomitant]
     Active Substance: ATORVASTATIN CALCIUM
  13. ZOLADEX [Suspect]
     Active Substance: GOSERELIN ACETATE
     Indication: PROSTATE CANCER
     Route: 058
     Dates: start: 201201
  14. HUMALOG [Concomitant]
     Active Substance: INSULIN LISPRO
     Indication: DIABETES MELLITUS
     Dosage: TAKING OVER 300 UNITS DAILY OF A COMBINATION OF LANTUS AND HUMALOG INSULIN
     Route: 058
  15. CASODEX [Suspect]
     Active Substance: BICALUTAMIDE
     Route: 048
  16. ZYTIGA [Concomitant]
     Active Substance: ABIRATERONE ACETATE
     Dosage: 1000 MG
  17. ZOLADEX [Suspect]
     Active Substance: GOSERELIN ACETATE
     Indication: PROSTATE CANCER
     Route: 058
     Dates: start: 201202, end: 201203
  18. ZOLADEX [Suspect]
     Active Substance: GOSERELIN ACETATE
     Indication: PROSTATE CANCER
     Route: 058
     Dates: start: 201203, end: 201209
  19. ZOLADEX [Suspect]
     Active Substance: GOSERELIN ACETATE
     Indication: PROSTATE CANCER
     Route: 058
     Dates: start: 201202
  20. ZOLADEX [Suspect]
     Active Substance: GOSERELIN ACETATE
     Indication: PROSTATE CANCER
     Route: 058
     Dates: start: 201206
  21. HYDROMORPHONE [Concomitant]
     Active Substance: HYDROMORPHONE
     Indication: PAIN
  22. VALIUM [Concomitant]
     Active Substance: DIAZEPAM
  23. LEVOTHYROXINE [Concomitant]
     Active Substance: LEVOTHYROXINE
     Indication: LETHARGY
  24. LANTUS INSULIN [Concomitant]
     Indication: DIABETES MELLITUS
     Dosage: 100 UNITS, TWO TIMES A DAY
     Route: 058
  25. LANTUS INSULIN [Concomitant]
     Indication: DIABETES MELLITUS
     Dosage: TAKING OVER 300 UNITS DAILY OF A COMBINATION OF LANTUS AND HUMALOG INSULIN
     Route: 058
  26. HUMALOG [Concomitant]
     Active Substance: INSULIN LISPRO
     Indication: DIABETES MELLITUS
     Dosage: 50 UNITS, TWO TIMES A DAY
     Route: 058

REACTIONS (47)
  - Concussion [Unknown]
  - Regurgitation [Unknown]
  - Activities of daily living impaired [Unknown]
  - Muscle spasms [Unknown]
  - Prostatic specific antigen abnormal [Unknown]
  - Off label use [Unknown]
  - Lethargy [Not Recovered/Not Resolved]
  - Neuropathy peripheral [Unknown]
  - Tremor [Not Recovered/Not Resolved]
  - Blood testosterone decreased [Unknown]
  - Head injury [Recovered/Resolved]
  - Discomfort [Recovering/Resolving]
  - Low density lipoprotein increased [Not Recovered/Not Resolved]
  - Influenza [Recovering/Resolving]
  - White blood cell count increased [Unknown]
  - Waist circumference increased [Unknown]
  - Increased insulin requirement [Unknown]
  - Fall [Recovered/Resolved]
  - Loss of consciousness [Recovered/Resolved]
  - Vitreous floaters [Unknown]
  - Motor dysfunction [Unknown]
  - Disease progression [Not Recovered/Not Resolved]
  - Pollakiuria [Unknown]
  - Diabetic retinopathy [Unknown]
  - Skin abrasion [Unknown]
  - Renal impairment [Unknown]
  - Glycosylated haemoglobin increased [Unknown]
  - Adverse event [Unknown]
  - Pain [Unknown]
  - Malaise [Unknown]
  - Depression [Unknown]
  - Weight increased [Not Recovered/Not Resolved]
  - Spinal cord disorder [Unknown]
  - Blood glucose increased [Not Recovered/Not Resolved]
  - Diabetes mellitus [Unknown]
  - Hernia [Unknown]
  - Soft tissue injury [Unknown]
  - Fatigue [Recovering/Resolving]
  - High density lipoprotein increased [Not Recovered/Not Resolved]
  - Hot flush [Unknown]
  - Multiple sclerosis [Unknown]
  - Visual impairment [Unknown]
  - Tachycardia [Unknown]
  - Limb discomfort [Unknown]
  - Drug hypersensitivity [Unknown]
  - Vision blurred [Unknown]
  - Stiff person syndrome [Unknown]

NARRATIVE: CASE EVENT DATE: 2012
